FAERS Safety Report 21172739 (Version 1)
Quarter: 2022Q3

REPORT INFORMATION
  Report Type: Report from Study
  Country: ES (occurrence: ES)
  Receive Date: 20220804
  Receipt Date: 20220804
  Transmission Date: 20221027
  Serious: Yes (Other)
  Sender: FDA-Public Use
  Company Number: ES-SA-SAC20220803000158

PATIENT
  Sex: Female
  Weight: 87 kg

DRUGS (1)
  1. INSULIN GLARGINE [Suspect]
     Active Substance: INSULIN GLARGINE
     Indication: Type 2 diabetes mellitus
     Dosage: 24 IU, QD
     Route: 058

REACTIONS (8)
  - Cataract [Not Recovered/Not Resolved]
  - Tremor [Recovered/Resolved]
  - Sluggishness [Recovered/Resolved]
  - Speech disorder [Recovered/Resolved]
  - Myopia [Not Recovered/Not Resolved]
  - Fear of injection [Unknown]
  - Blood glucose decreased [Recovered/Resolved]
  - Hyperhidrosis [Recovered/Resolved]
